FAERS Safety Report 4371345-9 (Version None)
Quarter: 2004Q2

REPORT INFORMATION
  Report Type: 
  Country: None (occurrence: None)
  Receive Date: 20040603
  Receipt Date: 20040513
  Transmission Date: 20050107
  Serious: Yes (Hospitalization)
  Sender: FDA-Public Use
  Company Number: 701596

PATIENT
  Age: 33 Year
  Sex: Female

DRUGS (5)
  1. AMEVIVE [Suspect]
     Indication: PSORIASIS
     Dosage: 15 MG QW IM
     Route: 030
     Dates: start: 20030101, end: 20030101
  2. AMEVIVE [Suspect]
     Indication: PSORIASIS
     Dosage: 15 MG QW IM
     Route: 030
     Dates: start: 20030101, end: 20040130
  3. ZANTAC [Concomitant]
  4. ZOLOFT [Concomitant]
  5. ORAL CONTRACEPTIVE PILLS [Concomitant]

REACTIONS (6)
  - COAGULOPATHY [None]
  - GASTROOESOPHAGEAL REFLUX DISEASE [None]
  - HEPATIC FAILURE [None]
  - HEPATITIS ACUTE [None]
  - NAUSEA [None]
  - VOMITING [None]
